FAERS Safety Report 6034995-X (Version None)
Quarter: 2009Q1

REPORT INFORMATION
  Report Type: 
  Country: None (occurrence: None)
  Receive Date: 20090109
  Receipt Date: 20090109
  Transmission Date: 20090719
  Serious: Yes (Other)
  Sender: FDA-Public Use
  Company Number: None

PATIENT
  Age: 73 Year
  Sex: Male
  Weight: 87.9978 kg

DRUGS (1)
  1. CLONIDINE [Suspect]
     Indication: HYPERTENSION
     Dosage: 0.1 MG TWICE DAILY
     Dates: start: 20081120, end: 20081216

REACTIONS (2)
  - DRUG HYPERSENSITIVITY [None]
  - RASH GENERALISED [None]
